FAERS Safety Report 22145400 (Version 1)
Quarter: 2023Q1

REPORT INFORMATION
  Report Type: Spontaneous
  Country: CN (occurrence: CN)
  Receive Date: 20230328
  Receipt Date: 20230328
  Transmission Date: 20230418
  Serious: Yes (Hospitalization, Disabling, Other)
  Sender: FDA-Public Use
  Company Number: CN-HALEON-CNCH2023APC013281

PATIENT

DRUGS (1)
  1. IBUPROFEN [Suspect]
     Active Substance: IBUPROFEN
     Indication: Pain
     Dosage: 0.3 G, BID
     Route: 048
     Dates: start: 20230310, end: 20230315

REACTIONS (4)
  - Blood pressure increased [Recovering/Resolving]
  - Face oedema [Recovering/Resolving]
  - Oedema [Recovering/Resolving]
  - Dizziness [Recovering/Resolving]

NARRATIVE: CASE EVENT DATE: 20230316
